FAERS Safety Report 13340924 (Version 5)
Quarter: 2017Q3

REPORT INFORMATION
  Report Type: Report from Study
  Country: US (occurrence: US)
  Receive Date: 20170316
  Receipt Date: 20170803
  Transmission Date: 20171127
  Serious: Yes (Hospitalization, Other)
  Sender: FDA-Public Use
  Company Number: US-AMGEN-USASL2017038257

PATIENT
  Sex: Female

DRUGS (5)
  1. XELJANZ [Concomitant]
     Active Substance: TOFACITINIB CITRATE
     Dosage: UNK
     Dates: start: 2007
  2. MTX [Suspect]
     Active Substance: METHOTREXATE SODIUM
     Indication: RHEUMATOID ARTHRITIS
     Dosage: 2.5 MG, 8 TABLETS PER WEEK
     Route: 065
     Dates: start: 2004, end: 2017
  3. PLAQUENIL [Concomitant]
     Active Substance: HYDROXYCHLOROQUINE SULFATE
     Dosage: UNK
     Dates: start: 2007
  4. ENBREL [Suspect]
     Active Substance: ETANERCEPT
     Indication: RHEUMATOID ARTHRITIS
     Dosage: 50 MG, UNK
     Route: 065
     Dates: start: 2007, end: 2017
  5. MTX [Suspect]
     Active Substance: METHOTREXATE SODIUM
     Dosage: UNK
     Route: 065
     Dates: start: 2017

REACTIONS (15)
  - Pyrexia [Recovering/Resolving]
  - Drug ineffective [Unknown]
  - Oedema [Not Recovered/Not Resolved]
  - Influenza like illness [Recovered/Resolved]
  - Vomiting [Recovering/Resolving]
  - Memory impairment [Not Recovered/Not Resolved]
  - Pulmonary oedema [Not Recovered/Not Resolved]
  - Gastrooesophageal reflux disease [Recovering/Resolving]
  - Malaise [Not Recovered/Not Resolved]
  - Pulmonary thrombosis [Recovering/Resolving]
  - Bedridden [Unknown]
  - Hyperhidrosis [Not Recovered/Not Resolved]
  - Adrenal insufficiency [Recovered/Resolved]
  - Rheumatoid lung [Unknown]
  - Adverse event [Recovered/Resolved]

NARRATIVE: CASE EVENT DATE: 2010
